FAERS Safety Report 19856892 (Version 7)
Quarter: 2022Q1

REPORT INFORMATION
  Report Type: Report from Study
  Country: US (occurrence: US)
  Receive Date: 20210920
  Receipt Date: 20220215
  Transmission Date: 20220423
  Serious: No
  Sender: FDA-Public Use
  Company Number: NVSC2021US212684

PATIENT
  Sex: Male

DRUGS (2)
  1. ENTRESTO [Suspect]
     Active Substance: SACUBITRIL\VALSARTAN
     Indication: Product used for unknown indication
     Dosage: 1 DF, BID (49/51)
     Route: 048
     Dates: start: 202108, end: 20211201
  2. CARVEDILOL [Suspect]
     Active Substance: CARVEDILOL
     Indication: Product used for unknown indication
     Dosage: UNK
     Route: 065

REACTIONS (16)
  - Heart rate decreased [Recovering/Resolving]
  - Dyspnoea [Unknown]
  - Chest pain [Recovered/Resolved]
  - Weight decreased [Unknown]
  - Balance disorder [Unknown]
  - Blood pressure increased [Recovering/Resolving]
  - Glycosylated haemoglobin [Unknown]
  - Eye colour change [Recovering/Resolving]
  - Swelling [Recovering/Resolving]
  - Wound [Recovering/Resolving]
  - Contusion [Recovering/Resolving]
  - Road traffic accident [Recovering/Resolving]
  - Fatigue [Unknown]
  - Asthenia [Unknown]
  - Dizziness [Unknown]
  - Cough [Unknown]
